FAERS Safety Report 5339803-8 (Version None)
Quarter: 2007Q2

REPORT INFORMATION
  Report Type: 
  Country: None (occurrence: None)
  Receive Date: 20070525
  Receipt Date: 20070515
  Transmission Date: 20071010
  Serious: Yes (Other)
  Sender: FDA-Public Use
  Company Number: B0471991A

PATIENT
  Sex: Male

DRUGS (1)
  1. CEPHAZOLIN SODIUM (FORMULATION UNKNOWN) (GENERIC) (CEFAZOLIN SODIUM) [Suspect]
     Indication: ENDOCARDITIS STAPHYLOCOCCAL

REACTIONS (3)
  - NEPHRITIS INTERSTITIAL [None]
  - PYREXIA [None]
  - RASH [None]
